FAERS Safety Report 9405661 (Version 1)
Quarter: 2013Q3

REPORT INFORMATION
  Report Type: Spontaneous
  Country: AU (occurrence: AU)
  Receive Date: 20130717
  Receipt Date: 20130717
  Transmission Date: 20140515
  Serious: Yes (Hospitalization, Other)
  Sender: FDA-Public Use
  Company Number: AU-009507513-1307AUS008322

PATIENT
  Age: 4 Year
  Sex: Male

DRUGS (1)
  1. CLARATYNE [Suspect]
     Dosage: 4-6 MISSING
     Route: 048
     Dates: start: 20070520

REACTIONS (5)
  - Loss of consciousness [Unknown]
  - Somnolence [Unknown]
  - Dyskinesia [Unknown]
  - Accidental exposure to product by child [Unknown]
  - Accidental overdose [Unknown]
